FAERS Safety Report 16548122 (Version 2)
Quarter: 2021Q3

REPORT INFORMATION
  Report Type: Spontaneous
  Country: US (occurrence: US)
  Receive Date: 20190709
  Receipt Date: 20210709
  Transmission Date: 20211014
  Serious: No
  Sender: FDA-Public Use
  Company Number: US-ASTELLAS-2019US010234

PATIENT
  Age: 60 Year
  Sex: Male

DRUGS (1)
  1. MYRBETRIQ [Suspect]
     Active Substance: MIRABEGRON
     Indication: BLADDER SPASM
     Dosage: 25 MG, ONCE DAILY (TAKEN FOR ONE WEEK TOTAL)
     Route: 065

REACTIONS (6)
  - Constipation [Unknown]
  - Drug ineffective for unapproved indication [Unknown]
  - Urinary retention [Unknown]
  - Anxiety [Unknown]
  - Depression [Unknown]
  - Blood pressure increased [Unknown]
